FAERS Safety Report 4642256-6 (Version None)
Quarter: 2005Q2

REPORT INFORMATION
  Report Type: 
  Country: None (occurrence: None)
  Receive Date: 20050421
  Receipt Date: 20050421
  Transmission Date: 20051028
  Serious: Yes (Death, Life-Threatening, Hospitalization, Disabling)
  Sender: FDA-Public Use
  Company Number: None

PATIENT
  Sex: Female
  Weight: 53.978 kg

DRUGS (2)
  1. INTERFERON 2A ALFA RECOMBINANT [Suspect]
     Indication: RENAL CANCER METASTATIC
     Dosage: 3 ML 3X WEEKS
     Dates: start: 20021202, end: 20030601
  2. . [Concomitant]

REACTIONS (8)
  - ANAEMIA [None]
  - BLOOD PRESSURE DECREASED [None]
  - CONFUSIONAL STATE [None]
  - DISORIENTATION [None]
  - FATIGUE [None]
  - NEOPLASM MALIGNANT [None]
  - PALLOR [None]
  - SCREAMING [None]
